FAERS Safety Report 15003843 (Version 1)
Quarter: 2018Q2

REPORT INFORMATION
  Report Type: Spontaneous
  Country: DE (occurrence: DE)
  Receive Date: 20180613
  Receipt Date: 20180613
  Transmission Date: 20180711
  Serious: Yes (Other)
  Sender: FDA-Public Use
  Company Number: DE-MERCK KGAA-2049317

PATIENT
  Sex: Female

DRUGS (5)
  1. EUTHYROX [Suspect]
     Active Substance: LEVOTHYROXINE SODIUM
     Dates: start: 2017, end: 2018
  2. EUTHYROX [Suspect]
     Active Substance: LEVOTHYROXINE SODIUM
     Dates: start: 2018
  3. NOVOTHYROX [Suspect]
     Active Substance: LEVOTHYROXINE SODIUM
     Indication: AUTOIMMUNE THYROIDITIS
  4. EUTHYROX [Suspect]
     Active Substance: LEVOTHYROXINE SODIUM
     Dates: start: 2018
  5. EUTHYROX [Suspect]
     Active Substance: LEVOTHYROXINE SODIUM
     Dates: start: 2018

REACTIONS (17)
  - Constipation [None]
  - Alopecia [None]
  - Insomnia [None]
  - Ear disorder [None]
  - Tinnitus [None]
  - Pruritus [None]
  - Live birth [Recovered/Resolved]
  - Sudden hearing loss [None]
  - Nausea [None]
  - Dizziness [None]
  - Blood thyroid stimulating hormone decreased [None]
  - Dyspnoea [None]
  - Blood thyroid stimulating hormone increased [None]
  - Hyperhidrosis [None]
  - Maternal exposure during pregnancy [Recovered/Resolved]
  - Drug intolerance [None]
  - Stress [None]

NARRATIVE: CASE EVENT DATE: 2017
